FAERS Safety Report 5994119-1 (Version None)
Quarter: 2008Q4

REPORT INFORMATION
  Report Type: 
  Country: None (occurrence: None)
  Receive Date: 20081212
  Receipt Date: 20081203
  Transmission Date: 20090506
  Serious: Yes (Other)
  Sender: FDA-Public Use
  Company Number: MX-AVENTIS-200819730GDDC

PATIENT
  Age: 32 Year
  Sex: Female
  Weight: 55 kg

DRUGS (1)
  1. ARAVA [Suspect]
     Indication: RHEUMATOID ARTHRITIS
     Route: 048
     Dates: start: 20070101, end: 20080901

REACTIONS (4)
  - ABORTION SPONTANEOUS [None]
  - DRUG EXPOSURE DURING PREGNANCY [None]
  - HAEMATOMA [None]
  - HYPOTENSION [None]
